FAERS Safety Report 16961909 (Version 1)
Quarter: 2019Q4

REPORT INFORMATION
  Report Type: Spontaneous
  Country: US (occurrence: US)
  Receive Date: 20191025
  Receipt Date: 20191025
  Transmission Date: 20200122
  Serious: Yes (Other)
  Sender: FDA-Public Use
  Company Number: US-HIKMA PHARMACEUTICALS USA INC.-US-H14001-19-49553

PATIENT
  Age: 27 Year
  Sex: Male

DRUGS (1)
  1. FENTANYL. [Suspect]
     Active Substance: FENTANYL
     Indication: SUBSTANCE ABUSE
     Dosage: ()
     Route: 065

REACTIONS (5)
  - Mitochondrial encephalomyopathy [Recovering/Resolving]
  - Autonomic nervous system imbalance [Recovering/Resolving]
  - Drug abuse [Recovering/Resolving]
  - Toxic leukoencephalopathy [Recovering/Resolving]
  - Neurotoxicity [Recovering/Resolving]
